FAERS Safety Report 9412874 (Version 1)
Quarter: 2013Q3

REPORT INFORMATION
  Report Type: Spontaneous
  Country: SE (occurrence: SE)
  Receive Date: 20130722
  Receipt Date: 20130722
  Transmission Date: 20140515
  Serious: Yes (Hospitalization)
  Sender: FDA-Public Use
  Company Number: SE-ROCHE-1249264

PATIENT
  Sex: Female

DRUGS (8)
  1. IKTORIVIL [Suspect]
     Indication: PRODUCT USED FOR UNKNOWN INDICATION
     Dosage: SOLUTION: 2.5 MG/ML
     Route: 048
     Dates: start: 20060214, end: 20130115
  2. ERGENYL [Suspect]
     Indication: PRODUCT USED FOR UNKNOWN INDICATION
     Dosage: PROLONGED RELEASE TABLET 300 MG
     Route: 065
     Dates: start: 20050925, end: 20121014
  3. ABILIFY [Concomitant]
     Dosage: TABLET 5 MG
     Route: 065
  4. OMEPRAZOL [Concomitant]
  5. KREON [Concomitant]
     Dosage: KREON 10000 GASTRO-RESISTANT CAPSULES, HARD
     Route: 065
  6. LERGIGAN [Concomitant]
     Dosage: LERGIGAN FC TABL 25 MG
     Route: 065
  7. AKINETON [Concomitant]
     Dosage: AKINETON TABLET 2 MG
     Route: 065
  8. ZELDOX [Concomitant]

REACTIONS (11)
  - Disturbance in attention [Not Recovered/Not Resolved]
  - Hallucination, auditory [Not Recovered/Not Resolved]
  - Depressed mood [Not Recovered/Not Resolved]
  - Mood swings [Not Recovered/Not Resolved]
  - Psychotic disorder [Not Recovered/Not Resolved]
  - Reading disorder [Not Recovered/Not Resolved]
  - Speech disorder [Not Recovered/Not Resolved]
  - Suicidal ideation [Not Recovered/Not Resolved]
  - Fatigue [Not Recovered/Not Resolved]
  - Weight increased [Not Recovered/Not Resolved]
  - Withdrawal syndrome [Not Recovered/Not Resolved]
